FAERS Safety Report 14183842 (Version 2)
Quarter: 2018Q1

REPORT INFORMATION
  Report Type: Spontaneous
  Country: JP (occurrence: JP)
  Receive Date: 20171113
  Receipt Date: 20180206
  Transmission Date: 20180508
  Serious: Yes (Death, Other)
  Sender: FDA-Public Use
  Company Number: JP-009507513-1708JPN002487J

PATIENT
  Age: 78 Year
  Sex: Male

DRUGS (2)
  1. KEYTRUDA [Suspect]
     Active Substance: PEMBROLIZUMAB
     Indication: LUNG NEOPLASM MALIGNANT
     Dosage: 200 MG, QW
     Route: 041
     Dates: start: 20170803, end: 2017
  2. MORPHINE SULFATE HYDRATE [Concomitant]
     Indication: PAIN
     Dosage: UNK
     Route: 065

REACTIONS (3)
  - Blood bilirubin increased [Unknown]
  - Malignant neoplasm progression [Fatal]
  - Amylase increased [Unknown]

NARRATIVE: CASE EVENT DATE: 201708
